FAERS Safety Report 24935769 (Version 1)
Quarter: 2025Q1

REPORT INFORMATION
  Report Type: Report from Study
  Country: US (occurrence: US)
  Receive Date: 20250206
  Receipt Date: 20250206
  Transmission Date: 20250409
  Serious: Yes (Other)
  Sender: EXELIXIS
  Company Number: US-EXELIXIS-CABO-24080818

PATIENT
  Age: 75 Year
  Sex: Female

DRUGS (11)
  1. CABOMETYX [Suspect]
     Active Substance: CABOZANTINIB S-MALATE
     Indication: Thyroid cancer
     Dates: start: 20240724
  2. CABOMETYX [Suspect]
     Active Substance: CABOZANTINIB S-MALATE
     Dosage: 40 MG, QD
     Dates: start: 20240815
  3. AMLODIPINE [Concomitant]
     Active Substance: AMLODIPINE BESYLATE
  4. SPIRONOLACTONE [Concomitant]
     Active Substance: SPIRONOLACTONE
  5. LEVOXYL [Concomitant]
     Active Substance: LEVOTHYROXINE SODIUM
  6. TRAMADOL [Concomitant]
     Active Substance: TRAMADOL
  7. ZOFRAN [Concomitant]
     Active Substance: ONDANSETRON HYDROCHLORIDE
  8. ROSUVASTATIN [Concomitant]
     Active Substance: ROSUVASTATIN
  9. ATROPINE\DIPHENOXYLATE [Concomitant]
     Active Substance: ATROPINE\DIPHENOXYLATE
  10. POTASSIUM CHLORIDE [Concomitant]
     Active Substance: POTASSIUM CHLORIDE
  11. TYLENOL [Concomitant]
     Active Substance: ACETAMINOPHEN

REACTIONS (14)
  - Hypokalaemia [Unknown]
  - Hair colour changes [Unknown]
  - Fatigue [Not Recovered/Not Resolved]
  - Diarrhoea [Not Recovered/Not Resolved]
  - Nausea [Recovering/Resolving]
  - Pruritus [Recovered/Resolved]
  - Dizziness [Recovered/Resolved]
  - Headache [Recovered/Resolved]
  - Pain in extremity [Unknown]
  - Blister [Unknown]
  - Vomiting [Unknown]
  - Exostosis [Unknown]
  - Pigmentation disorder [Unknown]
  - Gait disturbance [Unknown]

NARRATIVE: CASE EVENT DATE: 20240923
